FAERS Safety Report 11416667 (Version 5)
Quarter: 2017Q1

REPORT INFORMATION
  Report Type: Spontaneous
  Country: US (occurrence: US)
  Receive Date: 20150825
  Receipt Date: 20170106
  Transmission Date: 20170428
  Serious: Yes (Hospitalization, Other)
  Sender: FDA-Public Use
  Company Number: US-BAYER-2015-405911

PATIENT
  Age: 24 Year
  Sex: Female
  Weight: 70.3 kg

DRUGS (4)
  1. ZOLOFT [Concomitant]
     Active Substance: SERTRALINE HYDROCHLORIDE
     Indication: PERINATAL DEPRESSION
  2. OFLOXACIN. [Concomitant]
     Active Substance: OFLOXACIN
  3. MIRENA [Suspect]
     Active Substance: LEVONORGESTREL
  4. MIRENA [Suspect]
     Active Substance: LEVONORGESTREL
     Indication: CONTRACEPTION
     Dosage: 20 MCG/24HR, CONT
     Route: 015
     Dates: start: 20100723, end: 20130729

REACTIONS (9)
  - Drug ineffective [None]
  - Abdominal pain [None]
  - Device issue [None]
  - Uterine perforation [None]
  - Injury [None]
  - Pregnancy with contraceptive device [None]
  - Pelvic inflammatory disease [None]
  - Medical device discomfort [None]
  - Medical device pain [None]

NARRATIVE: CASE EVENT DATE: 201010
